FAERS Safety Report 16273413 (Version 1)
Quarter: 2019Q2

REPORT INFORMATION
  Report Type: Other
  Country: CN (occurrence: CN)
  Receive Date: 20190506
  Receipt Date: 20190506
  Transmission Date: 20190711
  Serious: Yes (Death)
  Sender: FDA-Public Use
  Company Number: CN-JIANGSU HENGRUI MEDICINE CO., LTD.-2066642

PATIENT
  Age: 49 Year
  Sex: Male
  Weight: 65 kg

DRUGS (5)
  1. SUFENTANIL CITRATE. [Concomitant]
     Active Substance: SUFENTANIL CITRATE
     Route: 041
     Dates: start: 20190410, end: 20190410
  2. AZLOCILLIN SODIUM FOR INJECTION [Concomitant]
     Route: 041
     Dates: end: 20190410
  3. ATROPINE SULFATE. [Concomitant]
     Active Substance: ATROPINE SULFATE
     Route: 041
     Dates: start: 20190410, end: 20190410
  4. CISATRACURIUM BESYLATE INJECTION USP, 20 MG/10 ML (2 MG/ML) MULTI-DOSE [Suspect]
     Active Substance: CISATRACURIUM BESYLATE
     Indication: INDUCTION OF ANAESTHESIA
     Route: 041
     Dates: start: 20190410, end: 20190410
  5. PROPOFOL INJECTABLE EMULSION [Concomitant]
     Active Substance: PROPOFOL
     Route: 041
     Dates: start: 20190410, end: 20190410

REACTIONS (1)
  - Anaphylactic shock [Fatal]

NARRATIVE: CASE EVENT DATE: 20190410
